FAERS Safety Report 9915727 (Version 3)
Quarter: 2014Q2

REPORT INFORMATION
  Report Type: Spontaneous
  Country: IT (occurrence: None)
  Receive Date: 20140218
  Receipt Date: 20140415
  Transmission Date: 20141212
  Serious: Yes (Hospitalization)
  Sender: FDA-Public Use
  Company Number: AUR-APL-2014-01648

PATIENT
  Age: 27 Year
  Sex: Female

DRUGS (5)
  1. OLANZAPINE [Suspect]
     Indication: PRODUCT USED FOR UNKNOWN INDICATION
     Dosage: (11 GM, TOTAL), ORAL
     Route: 048
     Dates: start: 20140130, end: 20140130
  2. ENTUMIN (CLOTIAPINE) [Suspect]
     Indication: PRODUCT USED FOR UNKNOWN INDICATION
     Dosage: (30 GTT, TOTAL), ORAL
     Route: 048
     Dates: start: 20140130, end: 20140130
  3. XANAX (ALPRAZOLAM) [Concomitant]
  4. AMISULPRIDE (AMISULPRIDE) [Concomitant]
  5. SERTRALINE (SERTRALINE) [Concomitant]

REACTIONS (4)
  - Intentional overdose [None]
  - Asthenia [None]
  - Dyspnoea [None]
  - Drug abuse [None]
